FAERS Safety Report 10166695 (Version 2)
Quarter: 2014Q3

REPORT INFORMATION
  Report Type: Spontaneous
  Country: GB (occurrence: None)
  Receive Date: 20140508
  Receipt Date: 20140812
  Transmission Date: 20150326
  Serious: Yes (Death, Hospitalization)
  Sender: FDA-Public Use
  Company Number: 2325554

PATIENT
  Age: 72 Year
  Sex: Female

DRUGS (16)
  1. PAMIDRONIC ACID [Suspect]
     Active Substance: PAMIDRONIC ACID
     Indication: HYPERCALCAEMIA OF MALIGNANCY
     Dosage: 90 MG MILLIGRAM(S), TOTAL, INTRAVENOUS (NOT OTHERWISE SPECIFIED)?
     Route: 042
     Dates: start: 20140409, end: 20140409
  2. AMOXICILLIN/CLAVULANATE POTASSIUM [Concomitant]
     Active Substance: AMOXICILLIN\CLAVULANATE POTASSIUM
  3. HALOPERIDOL. [Concomitant]
     Active Substance: HALOPERIDOL
  4. TERBUTALINE [Concomitant]
     Active Substance: TERBUTALINE
  5. INSULIN HUMAN [Concomitant]
     Active Substance: INSULIN HUMAN
  6. TRIAMCINOLONE [Concomitant]
     Active Substance: TRIAMCINOLONE
  7. FERROUS FUMARATE [Concomitant]
     Active Substance: FERROUS FUMARATE
  8. CYCLIZINE [Concomitant]
     Active Substance: CYCLIZINE
  9. SODIUM CHLORIDE. [Concomitant]
     Active Substance: SODIUM CHLORIDE
  10. ENOXAPARIN [Concomitant]
     Active Substance: ENOXAPARIN
  11. PREDNISOLONE. [Concomitant]
     Active Substance: PREDNISOLONE
  12. SERTRALINE [Concomitant]
     Active Substance: SERTRALINE HYDROCHLORIDE
  13. IBUPROFEN SODIUM [Suspect]
     Active Substance: IBUPROFEN SODIUM
     Indication: PAIN
     Dosage: 200 MG MILLIGRAM(S), 3 DAY, ORAL
     Route: 048
     Dates: start: 20140408, end: 20140415
  14. PARACETAMOL [Concomitant]
     Active Substance: ACETAMINOPHEN
  15. FOLIC ACID. [Concomitant]
     Active Substance: FOLIC ACID
  16. LANSOPRAZOLE. [Concomitant]
     Active Substance: LANSOPRAZOLE

REACTIONS (4)
  - Renal failure acute [None]
  - Nausea [None]
  - Somnolence [None]
  - General physical health deterioration [None]
